FAERS Safety Report 17933032 (Version 1)
Quarter: 2020Q2

REPORT INFORMATION
  Report Type: Spontaneous
  Country: IT (occurrence: IT)
  Receive Date: 20200623
  Receipt Date: 20200623
  Transmission Date: 20200714
  Serious: Yes (Death, Other)
  Sender: FDA-Public Use
  Company Number: NVSC2020IT172733

PATIENT
  Age: 55 Year
  Sex: Female

DRUGS (1)
  1. PREDNISONE. [Suspect]
     Active Substance: PREDNISONE
     Indication: DERMATOMYOSITIS
     Dosage: 1 MG/KG, QD
     Route: 065

REACTIONS (6)
  - Respiratory failure [Fatal]
  - Mucormycosis [Unknown]
  - Aspergillus infection [Unknown]
  - Hemiparesis [Unknown]
  - Hypoaesthesia [Unknown]
  - Neurological decompensation [Unknown]
